FAERS Safety Report 7635482-5 (Version None)
Quarter: 2011Q3

REPORT INFORMATION
  Report Type: 
  Country: None (occurrence: None)
  Receive Date: 20110726
  Receipt Date: 20110726
  Transmission Date: 20111222
  Serious: Yes (Death)
  Sender: FDA-Public Use
  Company Number: None

PATIENT
  Age: 64 Year
  Sex: Female
  Weight: 123.2 kg

DRUGS (1)
  1. BENLYSTA [Suspect]
     Indication: SYSTEMIC LUPUS ERYTHEMATOSUS
     Dosage: 600 MG
     Route: 041
     Dates: start: 20110705, end: 20110705

REACTIONS (10)
  - NASOPHARYNGITIS [None]
  - HYPOXIA [None]
  - MENTAL STATUS CHANGES [None]
  - PYREXIA [None]
  - CYANOSIS [None]
  - CHILLS [None]
  - CARDIAC ARREST [None]
  - RESPIRATORY ARREST [None]
  - DYSPNOEA [None]
  - ANGIOEDEMA [None]
